FAERS Safety Report 12076239 (Version 3)
Quarter: 2019Q1

REPORT INFORMATION
  Report Type: Spontaneous
  Country: US (occurrence: US)
  Receive Date: 20160215
  Receipt Date: 20190327
  Transmission Date: 20190417
  Serious: Yes (Hospitalization)
  Sender: FDA-Public Use
  Company Number: US-ASTRAZENECA-2013SE46719

PATIENT
  Age: 27352 Day
  Sex: Female
  Weight: 92.5 kg

DRUGS (5)
  1. GLIPIZIDE. [Concomitant]
     Active Substance: GLIPIZIDE
     Indication: DIABETES MELLITUS
  2. BYETTA [Suspect]
     Active Substance: EXENATIDE
     Indication: DIABETES MELLITUS
     Dosage: 2 DOSES
     Route: 058
     Dates: start: 20140113
  3. BYETTA [Suspect]
     Active Substance: EXENATIDE
     Indication: DIABETES MELLITUS
     Route: 058
     Dates: start: 201112
  4. BYETTA [Suspect]
     Active Substance: EXENATIDE
     Indication: DIABETES MELLITUS
     Route: 058
  5. METFORMIN [Concomitant]
     Active Substance: METFORMIN HYDROCHLORIDE
     Indication: DIABETES MELLITUS

REACTIONS (7)
  - Intentional product misuse [Unknown]
  - Product quality issue [Unknown]
  - Product administration error [Unknown]
  - Daydreaming [Unknown]
  - Therapy cessation [Unknown]
  - Blood glucose increased [Unknown]
  - Visual impairment [Unknown]

NARRATIVE: CASE EVENT DATE: 20160207
